FAERS Safety Report 22140839 (Version 2)
Quarter: 2023Q1

REPORT INFORMATION
  Report Type: Spontaneous
  Country: US (occurrence: US)
  Receive Date: 20230327
  Receipt Date: 20230331
  Transmission Date: 20230418
  Serious: No
  Sender: FDA-Public Use
  Company Number: US-PFIZER INC-202300120145

PATIENT
  Age: 13 Year
  Sex: Male
  Weight: 49.9 kg

DRUGS (1)
  1. GENOTROPIN [Suspect]
     Active Substance: SOMATROPIN
     Indication: Blood growth hormone abnormal
     Dosage: 3.4 MG, DAILY (UNDER THE SKIN IN THE LEG OR STOMACH)
     Route: 058
     Dates: start: 20230316

REACTIONS (7)
  - Incorrect dose administered by device [Unknown]
  - Device delivery system issue [Unknown]
  - Device issue [Unknown]
  - Fear of injection [Unknown]
  - Drug dose omission by device [Unknown]
  - Device difficult to use [Unknown]
  - Wrong technique in device usage process [Unknown]

NARRATIVE: CASE EVENT DATE: 20230316
